FAERS Safety Report 6062370-0 (Version None)
Quarter: 2009Q1

REPORT INFORMATION
  Report Type: 
  Country: None (occurrence: None)
  Receive Date: 20090129
  Receipt Date: 20090122
  Transmission Date: 20090719
  Serious: No
  Sender: FDA-Public Use
  Company Number: MSTR-NO-0805S-0019

PATIENT
  Age: 85 Year
  Sex: Male
  Weight: 41 kg

DRUGS (7)
  1. METASTRON [Suspect]
     Indication: METASTASES TO BONE
     Dosage: 82 MGQ, SINGLE DOSE, I.V.
     Route: 042
     Dates: start: 20080417, end: 20080417
  2. METASTRON [Suspect]
     Indication: METASTATIC PAIN
     Dosage: 82 MGQ, SINGLE DOSE, I.V.
     Route: 042
     Dates: start: 20080417, end: 20080417
  3. ZOMETA [Concomitant]
  4. LOXOPROFEN SODIUM [Concomitant]
  5. DICLOFENAC SODIUM [Concomitant]
  6. HYDROCHLORIDE [Concomitant]
  7. GOSERELIN ACETATE [Concomitant]

REACTIONS (6)
  - DRUG INEFFECTIVE [None]
  - EMPHYSEMA [None]
  - MALIGNANT NEOPLASM PROGRESSION [None]
  - PLATELET COUNT DECREASED [None]
  - PROTEIN TOTAL DECREASED [None]
  - PULMONARY OEDEMA [None]
